FAERS Safety Report 14922655 (Version 1)
Quarter: 2018Q2

REPORT INFORMATION
  Report Type: Spontaneous
  Country: DE (occurrence: DE)
  Receive Date: 20180522
  Receipt Date: 20180522
  Transmission Date: 20180711
  Serious: No
  Sender: FDA-Public Use
  Company Number: DE-LUPIN PHARMACEUTICALS INC.-2017-06742

PATIENT

DRUGS (10)
  1. PASCORBIN [Interacting]
     Active Substance: ASCORBIC ACID
     Indication: BRONCHITIS
     Dosage: 75 MG, UNK
     Route: 042
  2. VITAMIN B6 [Suspect]
     Active Substance: PYRIDOXINE HYDROCHLORIDE
     Indication: BRONCHITIS
     Dosage: UNK
     Route: 065
  3. QUETIAPINE TABLETS [Suspect]
     Active Substance: QUETIAPINE
     Indication: BIPOLAR DISORDER
     Dosage: 50 MG, QD, EVERY EVENING
     Route: 048
  4. VITAMIN B12 [Interacting]
     Active Substance: CYANOCOBALAMIN
     Indication: BRONCHITIS
     Dosage: UNK
     Route: 042
  5. VITAMIN B1 [Interacting]
     Active Substance: THIAMINE HYDROCHLORIDE
     Indication: BRONCHITIS
     Dosage: UNK
     Route: 042
  6. ENGYSTOL [Interacting]
     Active Substance: HOMEOPATHICS
     Indication: BRONCHITIS
     Dosage: UNK
     Route: 042
  7. SODIUM CHLORIDE. [Interacting]
     Active Substance: SODIUM CHLORIDE
     Indication: BRONCHITIS
     Dosage: 250 ML, UNK
     Route: 042
  8. ZINC. [Interacting]
     Active Substance: ZINC
     Indication: BRONCHITIS
     Dosage: UNK
     Route: 065
  9. ORFIRIL [Interacting]
     Active Substance: VALPROATE SODIUM
     Indication: PRODUCT USED FOR UNKNOWN INDICATION
     Dosage: UNK
     Route: 065
  10. LYMPHADEN [Interacting]
     Active Substance: HOMEOPATHICS
     Indication: BRONCHITIS
     Dosage: UNK
     Route: 042

REACTIONS (8)
  - Palpitations [Recovered/Resolved]
  - Confusional state [Recovered/Resolved]
  - Bronchitis [Recovered/Resolved]
  - Disorientation [Recovered/Resolved]
  - Anxiety [Recovered/Resolved]
  - Dizziness [Recovered/Resolved]
  - Drug interaction [Unknown]
  - Hypoaesthesia [Recovered/Resolved]

NARRATIVE: CASE EVENT DATE: 20171002
